FAERS Safety Report 7080245-5 (Version None)
Quarter: 2010Q4

REPORT INFORMATION
  Report Type: 
  Country: None (occurrence: None)
  Receive Date: 20101103
  Receipt Date: 20101025
  Transmission Date: 20110411
  Serious: No
  Sender: FDA-Public Use
  Company Number: US-BIOGENIDEC-2010BI037855

PATIENT
  Age: 59 Year
  Sex: Female

DRUGS (2)
  1. TYSABRI [Suspect]
     Indication: MULTIPLE SCLEROSIS
     Route: 042
     Dates: start: 20050224, end: 20050224
  2. TYSABRI [Suspect]
     Route: 042
     Dates: start: 20061024

REACTIONS (5)
  - FATIGUE [None]
  - HEADACHE [None]
  - HERPES ZOSTER [None]
  - PAIN IN EXTREMITY [None]
  - STRESS [None]
